FAERS Safety Report 24905792 (Version 1)
Quarter: 2025Q1

REPORT INFORMATION
  Report Type: Spontaneous
  Country: TR (occurrence: TR)
  Receive Date: 20250130
  Receipt Date: 20250130
  Transmission Date: 20250408
  Serious: Yes (Hospitalization)
  Sender: JOHNSON AND JOHNSON
  Company Number: TR-JNJFOC-20250110735

PATIENT
  Age: 22 Year
  Sex: Male

DRUGS (1)
  1. RISPERDAL [Suspect]
     Active Substance: RISPERIDONE
     Indication: Product used for unknown indication
     Route: 065

REACTIONS (4)
  - Psychotic disorder [Unknown]
  - Treatment noncompliance [Unknown]
  - Persecutory delusion [Unknown]
  - Irritability [Unknown]
